FAERS Safety Report 4538498-0 (Version None)
Quarter: 2004Q4

REPORT INFORMATION
  Report Type: 
  Country: None (occurrence: None)
  Receive Date: 20041227
  Receipt Date: 20040602
  Transmission Date: 20050328
  Serious: No
  Sender: FDA-Public Use
  Company Number: JP-BOEHRINGER INGELHEIM PHARMMACEUTICALS, INC.-2004-BP-04321NB

PATIENT
  Sex: Female
  Weight: 50 kg

DRUGS (8)
  1. MICARDIS [Suspect]
     Indication: ESSENTIAL HYPERTENSION
     Route: 048
     Dates: start: 20030930, end: 20040203
  2. NORVASC [Concomitant]
     Indication: ESSENTIAL HYPERTENSION
     Route: 048
     Dates: start: 19970630
  3. GLYBURIDE [Concomitant]
     Indication: DIABETES MELLITUS
     Route: 048
     Dates: start: 19970507
  4. FAMOTIDINE [Concomitant]
     Indication: GASTRIC ULCER
     Route: 048
     Dates: start: 19981224
  5. PENFILL R [Concomitant]
     Indication: DIABETES MELLITUS
     Route: 058
     Dates: start: 19990204
  6. DEPAS [Concomitant]
     Indication: INSOMNIA
     Route: 048
     Dates: start: 19980611
  7. ATARAX [Concomitant]
     Indication: DERMATITIS ALLERGIC
     Route: 048
  8. PURSENNID [Concomitant]
     Indication: CONSTIPATION
     Route: 048
     Dates: start: 19970511

REACTIONS (1)
  - ACUTE MYOCARDIAL INFARCTION [None]
